FAERS Safety Report 8508477-7 (Version None)
Quarter: 2012Q3

REPORT INFORMATION
  Report Type: 
  Country: None (occurrence: None)
  Receive Date: 20120713
  Receipt Date: 20120629
  Transmission Date: 20120928
  Serious: Yes (Other)
  Sender: FDA-Public Use
  Company Number: IT-MYLANLABS-2012S1013323

PATIENT
  Age: 42 Year
  Sex: Male

DRUGS (3)
  1. PAROXETINE HYDROCHLORIDE [Suspect]
     Indication: DEPRESSION
     Route: 048
     Dates: start: 20120101, end: 20120604
  2. VASCOMAN [Concomitant]
     Indication: PRODUCT USED FOR UNKNOWN INDICATION
  3. LORAZEPAM [Suspect]
     Indication: DEPRESSION
     Route: 048
     Dates: start: 20120101, end: 20120604

REACTIONS (2)
  - BALANCE DISORDER [None]
  - VERTIGO [None]
